FAERS Safety Report 9800378 (Version 1)
Quarter: 2014Q1

REPORT INFORMATION
  Report Type: Spontaneous
  Country: CN (occurrence: CN)
  Receive Date: 20140106
  Receipt Date: 20140106
  Transmission Date: 20141002
  Serious: Yes (Hospitalization)
  Sender: FDA-Public Use
  Company Number: CN-ROCHE-1327382

PATIENT
  Age: 48 Year
  Sex: Male

DRUGS (4)
  1. CELLCEPT [Suspect]
     Indication: POLYMYOSITIS
     Route: 065
  2. CYCLOPHOSPHAMIDE [Suspect]
     Indication: POLYMYOSITIS
     Route: 065
  3. HYDROXYCHLOROQUINE [Concomitant]
     Indication: POLYMYOSITIS
  4. NIFEDIPINE [Concomitant]
     Indication: HYPERTENSION

REACTIONS (1)
  - Venoocclusive liver disease [Unknown]
